FAERS Safety Report 9276366 (Version 1)
Quarter: 2012Q4

REPORT INFORMATION
  Report Type: Spontaneous
  Country: JP (occurrence: None)
  Receive Date: 20121109
  Receipt Date: 20121109
  Transmission Date: 20130627
  Serious: Yes (Life-Threatening)
  Sender: FDA-Public Use
  Company Number: 2012S1000292

PATIENT
  Age: 83 Year
  Sex: Male

DRUGS (8)
  1. CUBICIN (DAPTOMYCIN) [Suspect]
     Indication: STAPHYLOCOCCAL INFECTION
     Route: 041
     Dates: start: 20120308, end: 20120317
  2. CUBICIN (DAPTOMYCIN) [Suspect]
     Indication: DECUBITUS ULCER
     Route: 041
     Dates: start: 20120308, end: 20120317
  3. VANCOMYCIN [Concomitant]
  4. PREDNISOLONE ACETATE [Concomitant]
  5. ALL OTHER THERAPEUTIC PRODUCTS [Concomitant]
  6. AMINO ACIDS/CARBOHYDRATES/MINERALS/VITAMINS [Concomitant]
  7. TAKEPRON [Concomitant]
  8. NOVOLIN R [Concomitant]

REACTIONS (6)
  - Hepatic function abnormal [None]
  - Alanine aminotransferase increased [None]
  - Aspartate aminotransferase increased [None]
  - Blood acid phosphatase increased [None]
  - Blood bilirubin increased [None]
  - Gamma-glutamyltransferase increased [None]
